FAERS Safety Report 9663110 (Version 2)
Quarter: 2013Q4

REPORT INFORMATION
  Report Type: Spontaneous
  Country: JP (occurrence: JP)
  Receive Date: 20131101
  Receipt Date: 20131101
  Transmission Date: 20140711
  Serious: Yes (Hospitalization, Disabling, Other)
  Sender: FDA-Public Use
  Company Number: JP-009507513-2006-06-1730

PATIENT
  Age: 70 Year
  Sex: Male
  Weight: 56 kg

DRUGS (5)
  1. PEGINTRON [Suspect]
     Indication: CHRONIC HEPATITIS C
     Dosage: 100 MICROGRAM, QW
     Route: 058
     Dates: start: 20050614, end: 20050823
  2. PEGINTRON [Suspect]
     Dosage: 50 MICROGRAM, QW
     Route: 058
     Dates: start: 20050830, end: 20060502
  3. REBETOL [Suspect]
     Indication: CHRONIC HEPATITIS C
     Dosage: 400 MG, BID
     Route: 048
     Dates: start: 20050614, end: 20050901
  4. REBETOL [Suspect]
     Dosage: 200 MG, BID
     Route: 048
     Dates: start: 20050902, end: 20060509
  5. ADALAT CR [Concomitant]
     Indication: HYPERTENSION
     Dosage: 10 MG, QD
     Route: 048
     Dates: start: 2004

REACTIONS (3)
  - Tongue neoplasm malignant stage unspecified [Recovering/Resolving]
  - Endocrine ophthalmopathy [Recovering/Resolving]
  - Basedow^s disease [Recovered/Resolved with Sequelae]
